FAERS Safety Report 7407590-5 (Version None)
Quarter: 2011Q2

REPORT INFORMATION
  Report Type: 
  Country: None (occurrence: None)
  Receive Date: 20110405
  Receipt Date: 20110322
  Transmission Date: 20111010
  Serious: Yes (Hospitalization)
  Sender: FDA-Public Use
  Company Number: B0710292A

PATIENT
  Age: 58 Year
  Sex: Female

DRUGS (2)
  1. PARACETAMOL (FORMULATION UNKNOWN) (GENERIC) (ACETAMINOPHEN) [Suspect]
  2. KETOCONAZOLE [Suspect]

REACTIONS (5)
  - HEPATIC ENZYME INCREASED [None]
  - ALANINE AMINOTRANSFERASE INCREASED [None]
  - VOMITING [None]
  - MALAISE [None]
  - ASPARTATE AMINOTRANSFERASE INCREASED [None]
